FAERS Safety Report 6340755-2 (Version None)
Quarter: 2009Q3

REPORT INFORMATION
  Report Type: 
  Country: None (occurrence: None)
  Receive Date: 20090904
  Receipt Date: 20090827
  Transmission Date: 20100115
  Serious: Yes (Other)
  Sender: FDA-Public Use
  Company Number: FR-BRISTOL-MYERS SQUIBB COMPANY-14763973

PATIENT
  Age: 53 Year
  Sex: Male

DRUGS (3)
  1. ERBITUX [Suspect]
     Indication: HYPOPHARYNGEAL CANCER
     Dates: start: 20081201
  2. CISPLATIN [Suspect]
     Indication: HYPOPHARYNGEAL CANCER
     Dates: start: 20081201
  3. FLUOROURACIL [Suspect]
     Indication: HYPOPHARYNGEAL CANCER
     Dosage: SOULTION FOR INJECTION
     Route: 042
     Dates: start: 20081201

REACTIONS (3)
  - GAIT DISTURBANCE [None]
  - NYSTAGMUS [None]
  - VERTIGO [None]
